FAERS Safety Report 17933482 (Version 1)
Quarter: 2020Q2

REPORT INFORMATION
  Report Type: Spontaneous
  Country: ES (occurrence: ES)
  Receive Date: 20200623
  Receipt Date: 20200623
  Transmission Date: 20200714
  Serious: Yes (Hospitalization)
  Sender: FDA-Public Use
  Company Number: NVSC2020ES171718

PATIENT
  Age: 73 Year
  Sex: Male

DRUGS (5)
  1. ERTAPENEM. [Suspect]
     Active Substance: ERTAPENEM SODIUM
     Indication: CORONAVIRUS INFECTION
     Dosage: 1 G, QD (1 G DIA)
     Route: 042
     Dates: start: 20200324, end: 20200403
  2. DOLQUINE [Suspect]
     Active Substance: HYDROXYCHLOROQUINE SULFATE
     Indication: PNEUMONIA
     Dosage: 400 MG, QD (30 COMPRIMIDOS) (DIA)
     Route: 048
     Dates: start: 20200320, end: 20200407
  3. AZITROMICINA [Suspect]
     Active Substance: AZITHROMYCIN DIHYDRATE
     Indication: CORONAVIRUS INFECTION
     Dosage: 500 MG, QD (DIA)
     Route: 048
     Dates: start: 20200322, end: 20200407
  4. PIPERACILLIN/TAZOBACTAM [Suspect]
     Active Substance: PIPERACILLIN SODIUM\TAZOBACTAM SODIUM
     Indication: CORONAVIRUS INFECTION
     Dosage: UNK UNK, Q24H (C/24 H, VIAL)
     Route: 042
     Dates: start: 20200321, end: 20200405
  5. DOLQUINE [Suspect]
     Active Substance: HYDROXYCHLOROQUINE SULFATE
     Indication: CORONAVIRUS INFECTION

REACTIONS (3)
  - Hepatitis acute [Recovering/Resolving]
  - Bradycardia [Recovering/Resolving]
  - Haemorrhage [Recovering/Resolving]

NARRATIVE: CASE EVENT DATE: 20200403
